FAERS Safety Report 6260656-8 (Version None)
Quarter: 2009Q3

REPORT INFORMATION
  Report Type: 
  Country: None (occurrence: None)
  Receive Date: 20090708
  Receipt Date: 20090629
  Transmission Date: 20100115
  Serious: Yes (Hospitalization, Other)
  Sender: FDA-Public Use
  Company Number: FR-ABBOTT-09P-056-0582596-00

PATIENT
  Age: 70 Year
  Sex: Male

DRUGS (11)
  1. ZECLAR [Suspect]
     Indication: PRODUCTIVE COUGH
     Route: 048
     Dates: start: 20081228, end: 20090101
  2. SURGAM [Suspect]
     Indication: PRODUCTIVE COUGH
     Route: 048
     Dates: start: 20081228, end: 20090101
  3. OMEPRAZOLE [Suspect]
     Indication: HICCUPS
     Dates: start: 20081231, end: 20090101
  4. CARBOCYSYTEIN [Concomitant]
     Indication: PRODUCTIVE COUGH
  5. SPASFON [Concomitant]
     Indication: DRUG USE FOR UNKNOWN INDICATION
     Dates: start: 20081231
  6. ROCGEL [Concomitant]
     Indication: DRUG USE FOR UNKNOWN INDICATION
     Dates: start: 20081231
  7. RYTHMOL [Concomitant]
     Indication: ARRHYTHMIA
  8. SYMBICORT [Concomitant]
     Indication: ASTHMA
  9. AERIUS [Concomitant]
     Indication: DRUG USE FOR UNKNOWN INDICATION
  10. HYPERIUM [Concomitant]
     Indication: HYPERTENSION
  11. NAFTIDROFURYL [Concomitant]
     Indication: DRUG USE FOR UNKNOWN INDICATION

REACTIONS (5)
  - CONVULSION [None]
  - HYPOCALCAEMIA [None]
  - HYPONATRAEMIA [None]
  - HYPOPHOSPHATAEMIA [None]
  - POSTICTAL STATE [None]
